FAERS Safety Report 7018970-4 (Version None)
Quarter: 2010Q3

REPORT INFORMATION
  Report Type: 
  Country: None (occurrence: None)
  Receive Date: 20100928
  Receipt Date: 20100921
  Transmission Date: 20110219
  Serious: Yes (Other)
  Sender: FDA-Public Use
  Company Number: BR-WYE-H17671510

PATIENT
  Sex: Female
  Weight: 52 kg

DRUGS (2)
  1. PREMARIN [Suspect]
     Indication: HORMONE REPLACEMENT THERAPY
     Dosage: DOSE UNKNOWN; 1 TAB TAKEN DAILY
     Route: 048
     Dates: start: 19930101
  2. FARLUTAL [Concomitant]
     Indication: MENSTRUAL DISORDER
     Dosage: 10MG; FREQUENCY UNKNOWN
     Route: 065
     Dates: start: 19930101

REACTIONS (5)
  - ABDOMINAL PAIN UPPER [None]
  - COLON CANCER [None]
  - DIARRHOEA [None]
  - DYSPEPSIA [None]
  - MUSCULOSKELETAL CHEST PAIN [None]
